FAERS Safety Report 20344960 (Version 1)
Quarter: 2022Q1

REPORT INFORMATION
  Report Type: Report from Study
  Country: BE (occurrence: BE)
  Receive Date: 20220118
  Receipt Date: 20220118
  Transmission Date: 20220424
  Serious: Yes (Hospitalization, Other)
  Sender: FDA-Public Use
  Company Number: BE-BoehringerIngelheim-2018-BI-012229

PATIENT
  Age: 53 Year
  Sex: Female
  Weight: 70 kg

DRUGS (11)
  1. NINTEDANIB [Suspect]
     Active Substance: NINTEDANIB
     Indication: Product used for unknown indication
     Route: 048
     Dates: start: 20180221, end: 20180301
  2. NINTEDANIB [Suspect]
     Active Substance: NINTEDANIB
     Indication: Endometrial cancer
     Route: 048
     Dates: start: 20180303
  3. NINTEDANIB [Suspect]
     Active Substance: NINTEDANIB
     Indication: Endometrial cancer recurrent
  4. CARBOPLATIN [Suspect]
     Active Substance: CARBOPLATIN
     Indication: Endometrial cancer
     Dosage: 520 MG, 25MG/ 21 DAYS
     Route: 042
     Dates: start: 20180220
  5. PACLITAXEL [Suspect]
     Active Substance: PACLITAXEL
     Indication: Endometrial cancer
     Dosage: 313 MG, 25MG/21 DAYS
     Route: 042
     Dates: start: 20180220
  6. DEXAMETHASONE [Concomitant]
     Active Substance: DEXAMETHASONE
     Indication: Prophylaxis
     Route: 048
     Dates: start: 20180219
  7. PREGABALIN [Concomitant]
     Active Substance: PREGABALIN
     Indication: Neuralgia
     Route: 048
     Dates: start: 20180117
  8. FENTANYL [Concomitant]
     Active Substance: FENTANYL
     Indication: Pain
     Dosage: STRENGTH: 500MG/H
     Route: 062
     Dates: start: 20180209
  9. OXYCODONE [Concomitant]
     Active Substance: OXYCODONE
     Indication: Pain
     Dosage: DAILY DOSE: 80MG IF NECESSARY
     Route: 048
     Dates: start: 20180117
  10. ACETAMINOPHEN [Concomitant]
     Active Substance: ACETAMINOPHEN
     Indication: Pain
     Dosage: DAILY DOSE: 4 GR IF NECESSARY
     Route: 048
     Dates: start: 20180103
  11. METOCLOPRAMIDE [Concomitant]
     Active Substance: METOCLOPRAMIDE
     Indication: Nausea
     Dosage: DAILY DOSE: 30 MG IF NECESSARY
     Route: 048

REACTIONS (1)
  - Febrile neutropenia [Recovered/Resolved]

NARRATIVE: CASE EVENT DATE: 20180228
